FAERS Safety Report 6790577-3 (Version None)
Quarter: 2010Q2

REPORT INFORMATION
  Report Type: 
  Country: None (occurrence: None)
  Receive Date: 20100624
  Receipt Date: 20100615
  Transmission Date: 20101027
  Serious: Yes (Hospitalization)
  Sender: FDA-Public Use
  Company Number: DE-ABBOTT-10P-062-0647280-00

PATIENT
  Sex: Female
  Weight: 150 kg

DRUGS (22)
  1. HUMIRA [Suspect]
     Indication: CROHN'S DISEASE
     Route: 058
     Dates: start: 20070605
  2. HUMIRA [Suspect]
     Route: 058
     Dates: end: 20090501
  3. METHOTREXATE [Concomitant]
     Indication: CROHN'S DISEASE
     Route: 058
     Dates: start: 20091125
  4. DECORTIN [Concomitant]
     Indication: DRUG USE FOR UNKNOWN INDICATION
  5. BELOK ZOK [Concomitant]
     Indication: DRUG USE FOR UNKNOWN INDICATION
     Route: 048
  6. DELIX [Concomitant]
     Indication: DRUG USE FOR UNKNOWN INDICATION
     Route: 048
  7. PANTOZOL [Concomitant]
     Indication: GASTRIC DISORDER
     Dosage: 1 -2 X 40 MG
     Route: 048
  8. PANTOZOL [Concomitant]
     Indication: PROPHYLAXIS
  9. PARACETAMOL [Concomitant]
     Indication: DRUG USE FOR UNKNOWN INDICATION
     Dosage: 4 X 500 - 1000 MG
  10. NOVALGIN [Concomitant]
     Indication: DRUG USE FOR UNKNOWN INDICATION
     Dates: end: 20100201
  11. NOVALGIN [Concomitant]
     Dosage: 4 X 40 DROPS DAILY
     Dates: start: 20100201
  12. TRAMAL LONG [Concomitant]
     Indication: DRUG USE FOR UNKNOWN INDICATION
  13. GRUNCEF [Concomitant]
     Indication: DRUG USE FOR UNKNOWN INDICATION
     Dates: end: 20100201
  14. FRAGMIN P FORTE [Concomitant]
     Indication: THROMBOSIS PROPHYLAXIS
     Dosage: 1 INJECTION DAILY
     Route: 058
     Dates: start: 20091201, end: 20100201
  15. ARCOXIA [Concomitant]
     Indication: CROHN'S DISEASE
  16. ARCOXIA [Concomitant]
     Dates: start: 20100201
  17. EMBOLEX [Concomitant]
     Indication: THROMBOSIS PROPHYLAXIS
     Route: 058
     Dates: start: 20100201
  18. METEX [Concomitant]
     Indication: CROHN'S DISEASE
     Dates: start: 20100201
  19. FOLSAN [Concomitant]
     Indication: DRUG USE FOR UNKNOWN INDICATION
     Route: 048
     Dates: start: 20100201
  20. METOPROLOL TARTRATE [Concomitant]
     Indication: DRUG USE FOR UNKNOWN INDICATION
     Route: 048
     Dates: start: 20100201
  21. CORTIN [Concomitant]
     Indication: DRUG USE FOR UNKNOWN INDICATION
     Route: 048
     Dates: start: 20100201
  22. VITAMIN C [Concomitant]
     Indication: DRUG USE FOR UNKNOWN INDICATION
     Route: 048
     Dates: start: 20100201

REACTIONS (10)
  - ABDOMINAL INJURY [None]
  - ANKLE FRACTURE [None]
  - IMPAIRED HEALING [None]
  - LUMBAR VERTEBRAL FRACTURE [None]
  - RADIUS FRACTURE [None]
  - RIB FRACTURE [None]
  - ROAD TRAFFIC ACCIDENT [None]
  - SPINAL COLUMN INJURY [None]
  - SPLENIC RUPTURE [None]
  - TRAUMATIC BRAIN INJURY [None]
